FAERS Safety Report 15315994 (Version 1)
Quarter: 2018Q3

REPORT INFORMATION
  Report Type: Spontaneous
  Country: US (occurrence: US)
  Receive Date: 20180816
  Receipt Date: 20180816
  Transmission Date: 20181010
  Serious: Yes (Hospitalization)
  Sender: FDA-Public Use
  Company Number: None

PATIENT
  Age: 58 Year
  Sex: Female
  Weight: 92.08 kg

DRUGS (16)
  1. FREMARIN [Concomitant]
  2. LASIX [Concomitant]
     Active Substance: FUROSEMIDE
  3. FENTANYL. [Concomitant]
     Active Substance: FENTANYL
  4. OLANZAPINE. [Concomitant]
     Active Substance: OLANZAPINE
  5. MAVYRET [Suspect]
     Active Substance: GLECAPREVIR\PIBRENTASVIR
     Indication: HEPATITIS C
     Route: 048
     Dates: start: 20180425, end: 20180725
  6. LISINOPRIL. [Concomitant]
     Active Substance: LISINOPRIL
  7. OXYCODONE [Concomitant]
     Active Substance: OXYCODONE
  8. AMOXICILLIN. [Concomitant]
     Active Substance: AMOXICILLIN
  9. BUPRENORPHINE. [Concomitant]
     Active Substance: BUPRENORPHINE
  10. SERTRALINE [Concomitant]
     Active Substance: SERTRALINE HYDROCHLORIDE
  11. AMLOPINE [Concomitant]
     Active Substance: AMLODIPINE BESYLATE
  12. LACTULOSE. [Concomitant]
     Active Substance: LACTULOSE
  13. LAMICTAL [Concomitant]
     Active Substance: LAMOTRIGINE
  14. SPIRONOLACTONE. [Concomitant]
     Active Substance: SPIRONOLACTONE
  15. TRAZODONE [Concomitant]
     Active Substance: TRAZODONE HYDROCHLORIDE
  16. PROBIOTIC [Concomitant]
     Active Substance: PROBIOTICS NOS

REACTIONS (6)
  - Oedema peripheral [None]
  - Pneumonia klebsiella [None]
  - Culture urine positive [None]
  - Acute kidney injury [None]
  - Cellulitis [None]
  - Urinary tract infection [None]

NARRATIVE: CASE EVENT DATE: 20180513
